FAERS Safety Report 7652424-7 (Version None)
Quarter: 2011Q3

REPORT INFORMATION
  Report Type: 
  Country: None (occurrence: None)
  Receive Date: 20110803
  Receipt Date: 20110722
  Transmission Date: 20111222
  Serious: Yes (Hospitalization, Other)
  Sender: FDA-Public Use
  Company Number: FR-ELI_LILLY_AND_COMPANY-FR201106007367

PATIENT
  Age: 74 Year
  Sex: Female

DRUGS (2)
  1. MORPHINE [Concomitant]
  2. FORTEO [Suspect]
     Indication: SPINAL FRACTURE
     Dosage: UNK
     Route: 058
     Dates: end: 20110401

REACTIONS (1)
  - PANCREATITIS ACUTE [None]
